APPROVED DRUG PRODUCT: MITOMYCIN
Active Ingredient: MITOMYCIN
Strength: 20MG/VIAL
Dosage Form/Route: INJECTABLE;INJECTION
Application: A064144 | Product #002 | TE Code: AP
Applicant: ACCORD HEALTHCARE INC
Approved: Apr 30, 1998 | RLD: No | RS: No | Type: RX